FAERS Safety Report 4664797-8 (Version None)
Quarter: 2005Q2

REPORT INFORMATION
  Report Type: 
  Country: None (occurrence: None)
  Receive Date: 20050516
  Receipt Date: 20050428
  Transmission Date: 20051028
  Serious: Yes (Hospitalization)
  Sender: FDA-Public Use
  Company Number: DSA_26394_2005

PATIENT
  Age: 70 Year
  Sex: Male

DRUGS (5)
  1. MASDIL [Suspect]
     Indication: MYOCARDIAL ISCHAEMIA
     Dosage: 240 MD Q DAY PO
     Route: 048
     Dates: start: 20021001, end: 20030716
  2. ZOCOR [Suspect]
     Dosage: 20 MG Q DAY PO
     Route: 048
     Dates: start: 20021001, end: 20030709
  3. ACETYLSALICYLIC ACID [Concomitant]
  4. PANTOPRAZOLE [Concomitant]
  5. NITRODERM [Concomitant]

REACTIONS (3)
  - BLOOD CREATINE PHOSPHOKINASE INCREASED [None]
  - DRUG INTERACTION [None]
  - MYOPATHY [None]
